FAERS Safety Report 21325772 (Version 1)
Quarter: 2022Q3

REPORT INFORMATION
  Report Type: Report from Study
  Country: US (occurrence: US)
  Receive Date: 20220913
  Receipt Date: 20220913
  Transmission Date: 20221027
  Serious: Yes (Other)
  Sender: FDA-Public Use
  Company Number: US-BIOGEN-2022BI01154138

PATIENT
  Sex: Female

DRUGS (1)
  1. ADUHELM [Suspect]
     Active Substance: ADUCANUMAB-AVWA
     Indication: Dementia Alzheimer^s type
     Dosage: ADUHELM 170MG VIAL : INFUSE 10 MG/KG INTRAVENOUSLY AT WEEK 24 AND EVERY 4 WEEKS THEREAFTER. TO BE...
     Route: 050

REACTIONS (2)
  - Infarction [Unknown]
  - Headache [Recovered/Resolved]
